FAERS Safety Report 18218475 (Version 1)
Quarter: 2020Q3

REPORT INFORMATION
  Report Type: Spontaneous
  Country: US (occurrence: US)
  Receive Date: 20200831
  Receipt Date: 20200831
  Transmission Date: 20201103
  Serious: No
  Sender: FDA-Public Use
  Company Number: None

PATIENT
  Age: 58 Year
  Sex: Female
  Weight: 101 kg

DRUGS (1)
  1. FREMANEZUMAB?VFRM (FREMANEZUMAB?VFRM?225MG/1.5ML [Suspect]
     Active Substance: FREMANEZUMAB-VFRM
     Indication: MIGRAINE
     Route: 058
     Dates: start: 20190903, end: 20190904

REACTIONS (4)
  - Myalgia [None]
  - Fatigue [None]
  - Depression [None]
  - Malaise [None]

NARRATIVE: CASE EVENT DATE: 20190920
